FAERS Safety Report 11368699 (Version 7)
Quarter: 2016Q2

REPORT INFORMATION
  Report Type: Report from Study
  Country: CA (occurrence: CA)
  Receive Date: 20150812
  Receipt Date: 20160428
  Transmission Date: 20160815
  Serious: Yes (Hospitalization, Other)
  Sender: FDA-Public Use
  Company Number: CA-ROCHE-1590628

PATIENT
  Age: 55 Year
  Sex: Female
  Weight: 46 kg

DRUGS (5)
  1. AVASTIN [Suspect]
     Active Substance: BEVACIZUMAB
     Indication: OVARIAN CANCER
     Route: 042
     Dates: start: 20150515
  2. PANTOPRAZOLE [Concomitant]
     Active Substance: PANTOPRAZOLE SODIUM
  3. AVASTIN [Suspect]
     Active Substance: BEVACIZUMAB
     Route: 042
     Dates: start: 20150625
  4. SYNTHROID [Concomitant]
     Active Substance: LEVOTHYROXINE SODIUM
  5. FRAGMIN [Concomitant]
     Active Substance: DALTEPARIN SODIUM

REACTIONS (7)
  - Incorrect dose administered [Unknown]
  - Blood pressure increased [Unknown]
  - Weight decreased [Unknown]
  - Nephrolithiasis [Recovered/Resolved]
  - Seizure [Unknown]
  - Weight increased [Unknown]
  - Haemoglobin decreased [Not Recovered/Not Resolved]

NARRATIVE: CASE EVENT DATE: 20150604
